FAERS Safety Report 13838628 (Version 1)
Quarter: 2017Q3

REPORT INFORMATION
  Report Type: Spontaneous
  Country: US (occurrence: US)
  Receive Date: 20170807
  Receipt Date: 20170807
  Transmission Date: 20171127
  Serious: No
  Sender: FDA-Public Use
  Company Number: US-BAYER-2017-150348

PATIENT
  Age: 80 Year
  Sex: Female
  Weight: 45.99 kg

DRUGS (1)
  1. MIRALAX [Suspect]
     Active Substance: POLYETHYLENE GLYCOL 3350
     Dosage: 2 DF, QD
     Route: 065

REACTIONS (3)
  - Inappropriate prescribing [Unknown]
  - Diarrhoea [Unknown]
  - Extra dose administered [Unknown]
